FAERS Safety Report 13572506 (Version 1)
Quarter: 2017Q2

REPORT INFORMATION
  Report Type: Spontaneous
  Country: US (occurrence: US)
  Receive Date: 20170523
  Receipt Date: 20170523
  Transmission Date: 20170830
  Serious: No
  Sender: FDA-Public Use
  Company Number: None

PATIENT
  Age: 34 Year
  Sex: Female
  Weight: 58.5 kg

DRUGS (3)
  1. CIPROFLOXACIN 1000 MG TABLET [Suspect]
     Active Substance: CIPROFLOXACIN
     Dosage: ?          QUANTITY:1 TABLET(S);?
     Route: 048
  2. IBUPROFEN. [Concomitant]
     Active Substance: IBUPROFEN
  3. TRICYCLEN BIRTH CONTROL [Concomitant]

REACTIONS (9)
  - Discomfort [None]
  - Arthralgia [None]
  - Pyrexia [None]
  - Tendon rupture [None]
  - Urticaria [None]
  - Malaise [None]
  - Nausea [None]
  - Tendon pain [None]
  - Pruritus [None]

NARRATIVE: CASE EVENT DATE: 20130622
